FAERS Safety Report 10200141 (Version 2)
Quarter: 2014Q2

REPORT INFORMATION
  Report Type: Spontaneous
  Country: FR (occurrence: FR)
  Receive Date: 20140527
  Receipt Date: 20140527
  Transmission Date: 20141212
  Serious: Yes (Hospitalization, Other)
  Sender: FDA-Public Use
  Company Number: FR-DSJP-DSE-2014-106515

PATIENT
  Sex: 0

DRUGS (2)
  1. SEVIKAR 40 MG/ 5 MG [Suspect]
     Indication: HYPERTENSION
     Dosage: 40/5 MG, QD
     Route: 048
     Dates: start: 2011, end: 201402
  2. TAHOR [Concomitant]
     Indication: PRODUCT USED FOR UNKNOWN INDICATION

REACTIONS (2)
  - Colitis [Recovered/Resolved with Sequelae]
  - Hepatitis [Not Recovered/Not Resolved]
